FAERS Safety Report 5011579-3 (Version None)
Quarter: 2006Q2

REPORT INFORMATION
  Report Type: 
  Country: None (occurrence: None)
  Receive Date: 20060524
  Receipt Date: 20060509
  Transmission Date: 20061013
  Serious: Yes (Hospitalization, Other)
  Sender: FDA-Public Use
  Company Number: US-ELI_LILLY_AND_CO-US_04

PATIENT
  Age: 42 Year
  Sex: Female
  Weight: 107.94 kg

DRUGS (13)
  1. PERMAX [Suspect]
     Indication: MUSCLE TWITCHING
     Dosage: SEE IMAGE
     Dates: start: 19960820
  2. PERMAX [Suspect]
     Indication: MUSCLE TWITCHING
     Dosage: SEE IMAGE
     Dates: start: 20010101
  3. WELLBUTRIN [Concomitant]
  4. LORAZEPAM [Concomitant]
  5. CLONAZEPAM [Concomitant]
  6. GABAPENTIN [Concomitant]
  7. TRAMADOL HCL [Concomitant]
  8. TEMAZEPAM [Concomitant]
  9. TRAZODONE HCL [Concomitant]
  10. VIOXX [Concomitant]
  11. ESTRADIOL [Concomitant]
  12. PARACETAMOL [Concomitant]
  13. HYDROCODONE BITARTRATE [Concomitant]

REACTIONS (7)
  - ANXIETY [None]
  - DEPRESSION [None]
  - DRUG INEFFECTIVE [None]
  - INSOMNIA [None]
  - MARITAL PROBLEM [None]
  - PATHOLOGICAL GAMBLING [None]
  - SUICIDAL IDEATION [None]
